FAERS Safety Report 7570901-4 (Version None)
Quarter: 2011Q2

REPORT INFORMATION
  Report Type: 
  Country: None (occurrence: None)
  Receive Date: 20110620
  Receipt Date: 20110603
  Transmission Date: 20111010
  Serious: Yes (Hospitalization, Other)
  Sender: FDA-Public Use
  Company Number: AUR-APL-2011-01872

PATIENT
  Age: 75 Year
  Sex: Female

DRUGS (4)
  1. METFORMIN HCL [Suspect]
     Indication: PRODUCT USED FOR UNKNOWN INDICATION
     Dosage: 1000 MG
  2. TRIMETHOPRIM + SULFAMETHOXAZOLE [Suspect]
     Indication: PRODUCT USED FOR UNKNOWN INDICATION
  3. NATEGLINIDE [Suspect]
     Indication: PRODUCT USED FOR UNKNOWN INDICATION
     Dosage: 60 MG
  4. GLIPIZIDE [Suspect]
     Indication: PRODUCT USED FOR UNKNOWN INDICATION
     Dosage: 5 MG

REACTIONS (9)
  - DELIRIUM [None]
  - OSTEOMYELITIS [None]
  - OEDEMA PERIPHERAL [None]
  - SKIN WARM [None]
  - POLYMEDICATION [None]
  - DECREASED APPETITE [None]
  - CONDITION AGGRAVATED [None]
  - HYPOGLYCAEMIC SEIZURE [None]
  - DRUG ADMINISTRATION ERROR [None]
